FAERS Safety Report 17685814 (Version 2)
Quarter: 2020Q2

REPORT INFORMATION
  Report Type: Spontaneous
  Country: US (occurrence: US)
  Receive Date: 20200420
  Receipt Date: 20200427
  Transmission Date: 20200714
  Serious: Yes (Death, Hospitalization, Other)
  Sender: FDA-Public Use
  Company Number: US-ASTRAZENECA-2020SE51682

PATIENT
  Age: 25641 Day
  Sex: Male

DRUGS (32)
  1. CELECOXIB. [Concomitant]
     Active Substance: CELECOXIB
  2. STAXYN [Concomitant]
     Active Substance: VARDENAFIL HYDROCHLORIDE
  3. ASPIRIN. [Concomitant]
     Active Substance: ASPIRIN
     Indication: CARDIAC DISORDER
     Route: 065
     Dates: start: 20150508
  4. WELLBUTRIN XL [Concomitant]
     Active Substance: BUPROPION HYDROCHLORIDE
  5. FLOMAX [Concomitant]
     Active Substance: TAMSULOSIN HYDROCHLORIDE
  6. PERCOCET [Concomitant]
     Active Substance: ACETAMINOPHEN\OXYCODONE HYDROCHLORIDE
  7. ZOFRAN [Concomitant]
     Active Substance: ONDANSETRON HYDROCHLORIDE
  8. TESTIM [Concomitant]
     Active Substance: TESTOSTERONE
  9. BYETTA [Suspect]
     Active Substance: EXENATIDE
     Route: 065
  10. JANUVIA [Suspect]
     Active Substance: SITAGLIPTIN PHOSPHATE
     Indication: DIABETES MELLITUS
     Route: 065
     Dates: start: 20180815, end: 201901
  11. VITAMIN D3 [Concomitant]
     Active Substance: CHOLECALCIFEROL
     Indication: VITAMIN D DEFICIENCY
     Route: 065
     Dates: start: 20150320
  12. CREON [Concomitant]
     Active Substance: PANCRELIPASE AMYLASE\PANCRELIPASE LIPASE\PANCRELIPASE PROTEASE
  13. WELCHOL [Concomitant]
     Active Substance: COLESEVELAM HYDROCHLORIDE
  14. GLUCOPHAGE [Concomitant]
     Active Substance: METFORMIN HYDROCHLORIDE
     Indication: TYPE 2 DIABETES MELLITUS
     Route: 048
     Dates: start: 20080404
  15. FORTESTA [Concomitant]
     Active Substance: TESTOSTERONE
  16. MYRBETRIQ [Concomitant]
     Active Substance: MIRABEGRON
  17. VISTARIL [Concomitant]
     Active Substance: HYDROXYZINE PAMOATE
  18. MELATONIN [Concomitant]
     Active Substance: MELATONIN
  19. SEROQUEL [Concomitant]
     Active Substance: QUETIAPINE FUMARATE
  20. DURAGESIC [Concomitant]
     Active Substance: FENTANYL
  21. ATIVAN [Concomitant]
     Active Substance: LORAZEPAM
  22. MARINOL [Concomitant]
     Active Substance: DRONABINOL
  23. ABRAXANE [Concomitant]
     Active Substance: PACLITAXEL
  24. BYDUREON [Suspect]
     Active Substance: EXENATIDE
     Indication: DIABETES MELLITUS
     Dosage: PEN
     Route: 065
     Dates: start: 20150320, end: 20171004
  25. VIAGRA [Concomitant]
     Active Substance: SILDENAFIL CITRATE
  26. AMBIEN [Concomitant]
     Active Substance: ZOLPIDEM TARTRATE
  27. PRILOSEC [Concomitant]
     Active Substance: OMEPRAZOLE MAGNESIUM
  28. METHYLPREDNISOLONE. [Concomitant]
     Active Substance: METHYLPREDNISOLONE
  29. PRINIVIL [Concomitant]
     Active Substance: LISINOPRIL
  30. ULTRAM [Concomitant]
     Active Substance: TRAMADOL HYDROCHLORIDE
  31. COMPAZINE [Concomitant]
     Active Substance: PROCHLORPERAZINE MALEATE
  32. MIRTAZAPINE. [Concomitant]
     Active Substance: MIRTAZAPINE

REACTIONS (1)
  - Adenocarcinoma pancreas [Fatal]

NARRATIVE: CASE EVENT DATE: 20190111
